FAERS Safety Report 17877747 (Version 2)
Quarter: 2020Q2

REPORT INFORMATION
  Report Type: Spontaneous
  Country: CZ (occurrence: CZ)
  Receive Date: 20200609
  Receipt Date: 20200615
  Transmission Date: 20200714
  Serious: Yes (Hospitalization)
  Sender: FDA-Public Use
  Company Number: CZ-EXELIXIS-CABO-20030338

PATIENT
  Age: 42 Year
  Sex: Male

DRUGS (8)
  1. CABOMETYX [Suspect]
     Active Substance: CABOZANTINIB S-MALATE
     Indication: METASTATIC RENAL CELL CARCINOMA
     Dosage: 60 MG, QD
     Route: 048
  2. LEVOTHYROXIN [Concomitant]
     Active Substance: LEVOTHYROXINE
  3. CABOMETYX [Suspect]
     Active Substance: CABOZANTINIB S-MALATE
     Dosage: 40 MG, QD
     Route: 048
     Dates: end: 201904
  4. DABIGATRANUM ETEXILATUM [Concomitant]
  5. INSULIN [Concomitant]
     Active Substance: INSULIN NOS
  6. ALLOPURINOL. [Concomitant]
     Active Substance: ALLOPURINOL
  7. CORTICOIDS [Concomitant]
     Active Substance: UNSPECIFIED INGREDIENT
  8. LOSARTAN AND HYDROCHLOROTHIAZIDE [Concomitant]
     Active Substance: HYDROCHLOROTHIAZIDE\LOSARTAN POTASSIUM

REACTIONS (18)
  - Decreased appetite [Recovering/Resolving]
  - Dysphonia [Unknown]
  - Aspartate aminotransferase increased [Unknown]
  - Diarrhoea [Recovering/Resolving]
  - Diabetic metabolic decompensation [Recovering/Resolving]
  - Hypertension [Unknown]
  - Malignant neoplasm progression [Unknown]
  - Nausea [Recovering/Resolving]
  - Fatigue [Recovering/Resolving]
  - Palmar-plantar erythrodysaesthesia syndrome [Recovering/Resolving]
  - Hypothyroidism [Unknown]
  - Gamma-glutamyltransferase increased [Unknown]
  - Multiple sclerosis relapse [Recovering/Resolving]
  - Thrombocytopenia [Unknown]
  - Anaemia [Unknown]
  - Oral discomfort [Recovering/Resolving]
  - Alanine aminotransferase increased [Unknown]
  - Alopecia [Unknown]

NARRATIVE: CASE EVENT DATE: 201904
